FAERS Safety Report 5059709-1 (Version None)
Quarter: 2006Q3

REPORT INFORMATION
  Report Type: 
  Country: None (occurrence: None)
  Receive Date: 20060724
  Receipt Date: 20060713
  Transmission Date: 20061208
  Serious: Yes (Other)
  Sender: FDA-Public Use
  Company Number: US-ROCHE-455609

PATIENT
  Sex: Male

DRUGS (4)
  1. FUZEON [Suspect]
     Dosage: ROUTE REPORTED AS INJ. PATIENT INJECTED IN THE ABDOMEN.
     Route: 050
     Dates: start: 20060601
  2. KALETRA [Concomitant]
  3. UNSPECIFIED DRUG [Concomitant]
     Dosage: REPORTED AS ^SOMETHING LIKE TRIVA^.
  4. BLOOD PRESSURE MEDICATIONS NOS [Concomitant]
     Indication: BLOOD PRESSURE
     Dosage: THE PATIENT TOOK TWO BLOOD PRESSURE MEDICATIONS.

REACTIONS (1)
  - THROMBOSIS [None]
